FAERS Safety Report 24812535 (Version 1)
Quarter: 2025Q1

REPORT INFORMATION
  Report Type: Report from Study
  Country: US (occurrence: US)
  Receive Date: 20250107
  Receipt Date: 20250107
  Transmission Date: 20250409
  Serious: Yes (Other)
  Sender: DECIPHERA PHARMACEUTICALS
  Company Number: US-DECIPHERA PHARMACEUTICALS LLC-2024US001084

PATIENT
  Sex: Male
  Weight: 61.678 kg

DRUGS (2)
  1. QINLOCK [Suspect]
     Active Substance: RIPRETINIB
     Indication: Gastrointestinal stromal tumour
     Dosage: 150 MILLIGRAM, QD (TOOK IN THE AFTERNOON)
     Route: 048
     Dates: start: 20231026, end: 202412
  2. QINLOCK [Suspect]
     Active Substance: RIPRETINIB
     Dosage: 150 MILLIGRAM, QD (TOOK IN THE AFTERNOON)
     Route: 048
     Dates: start: 20241224

REACTIONS (1)
  - Hip arthroplasty [Unknown]
